FAERS Safety Report 14501981 (Version 1)
Quarter: 2018Q1

REPORT INFORMATION
  Report Type: Spontaneous
  Country: US (occurrence: US)
  Receive Date: 20180208
  Receipt Date: 20180208
  Transmission Date: 20180509
  Serious: No
  Sender: FDA-Public Use
  Company Number: US-AUROBINDO-AUR-APL-2016-16210

PATIENT
  Age: 19 Year
  Sex: Female

DRUGS (4)
  1. ISENTRESS [Suspect]
     Active Substance: RALTEGRAVIR POTASSIUM
     Indication: HIV INFECTION
     Dosage: 800 MG, UNK
     Dates: start: 20151023
  2. LAMIVUDINE. [Suspect]
     Active Substance: LAMIVUDINE
     Indication: HIV INFECTION
     Dosage: 300 MG, DAILY
     Route: 048
     Dates: start: 20151023
  3. ABACAVIR. [Suspect]
     Active Substance: ABACAVIR
     Indication: HIV INFECTION
     Dosage: 600 MG, DAILY
     Route: 048
     Dates: start: 20151023
  4. RETROVIR [Suspect]
     Active Substance: ZIDOVUDINE
     Indication: HIV INFECTION
     Dosage: 2 MG/KG/HR
     Route: 042
     Dates: start: 20151230, end: 20151230

REACTIONS (1)
  - Exposure during pregnancy [Unknown]
